FAERS Safety Report 25842893 (Version 1)
Quarter: 2025Q3

REPORT INFORMATION
  Report Type: Spontaneous
  Country: US (occurrence: US)
  Receive Date: 20250924
  Receipt Date: 20250924
  Transmission Date: 20251021
  Serious: No
  Sender: INCYTE
  Company Number: US-INCYTE CORPORATION-2025IN010185

PATIENT
  Age: 15 Year

DRUGS (3)
  1. JAKAFI [Suspect]
     Active Substance: RUXOLITINIB
     Indication: Complications of bone marrow transplant
     Dosage: 15 MILLIGRAM, BID
  2. JAKAFI [Suspect]
     Active Substance: RUXOLITINIB
     Indication: Combined immunodeficiency
  3. JAKAFI [Suspect]
     Active Substance: RUXOLITINIB
     Indication: Graft versus host disease

REACTIONS (1)
  - Off label use [Unknown]
